FAERS Safety Report 10388925 (Version 1)
Quarter: 2014Q1

REPORT INFORMATION
  Report Type: Spontaneous
  Country: US (occurrence: None)
  Receive Date: 20140306
  Receipt Date: 20140306
  Transmission Date: 20141002
  Serious: Yes (Other)
  Sender: FDA-Public Use
  Company Number: 163-21880-13114921

PATIENT
  Age: 76 Year
  Sex: Male
  Weight: 76.2 kg

DRUGS (8)
  1. REVLIMID (LENALIDOMIDE) (25 MILLIGRAM, CAPSULES) [Suspect]
     Indication: PLASMA CELL MYELOMA
     Route: 048
     Dates: start: 200908
  2. ATENOLOL [Concomitant]
  3. FLOMAX (TAMSULOSIN HYDROCHLORIDE) [Concomitant]
  4. HYDROMORPHONE [Concomitant]
  5. LASIX (FUROSEMIDE) [Concomitant]
  6. MORPHINE [Concomitant]
  7. OMEPRAZOLE [Concomitant]
  8. ZETIA (EXETIMIBE) [Concomitant]

REACTIONS (1)
  - Pulmonary embolism [None]
